FAERS Safety Report 4824394-8 (Version None)
Quarter: 2005Q4

REPORT INFORMATION
  Report Type: 
  Country: None (occurrence: None)
  Receive Date: 20051108
  Receipt Date: 20051027
  Transmission Date: 20060501
  Serious: Yes (Hospitalization)
  Sender: FDA-Public Use
  Company Number: HP200500107

PATIENT
  Age: 51 Year
  Sex: Female

DRUGS (3)
  1. ACCUZYME (PAPAIN, UREA) OINTMENT [Suspect]
     Indication: SKIN EXFOLIATION
     Dosage: 30 G, QD, TOPICAL
     Route: 061
     Dates: start: 20051019, end: 20051020
  2. METHOTREXATE [Concomitant]
  3. PREDNISONE [Concomitant]

REACTIONS (6)
  - APPLICATION SITE IRRITATION [None]
  - APPLICATION SITE PAIN [None]
  - BLOOD GLUCOSE INCREASED [None]
  - WHITE BLOOD CELL COUNT INCREASED [None]
  - WOUND INFECTION [None]
  - WOUND NECROSIS [None]
